FAERS Safety Report 7085802-8 (Version None)
Quarter: 2010Q4

REPORT INFORMATION
  Report Type: 
  Country: None (occurrence: None)
  Receive Date: 20101105
  Receipt Date: 20101026
  Transmission Date: 20110411
  Serious: Yes (Hospitalization)
  Sender: FDA-Public Use
  Company Number: US-ROCHE-736891

PATIENT
  Sex: Female

DRUGS (2)
  1. BONIVA [Suspect]
     Route: 065
     Dates: start: 20070901, end: 20081201
  2. FOSAMAX [Suspect]
     Route: 065
     Dates: start: 20050701

REACTIONS (1)
  - FEMUR FRACTURE [None]
